FAERS Safety Report 12095005 (Version 4)
Quarter: 2016Q4

REPORT INFORMATION
  Report Type: Spontaneous
  Country: US (occurrence: US)
  Receive Date: 20160219
  Receipt Date: 20161024
  Transmission Date: 20170206
  Serious: Yes (Death, Hospitalization)
  Sender: FDA-Public Use
  Company Number: US-JNJFOC-20160217416

PATIENT
  Sex: Female
  Weight: 72.58 kg

DRUGS (1)
  1. XARELTO [Suspect]
     Active Substance: RIVAROXABAN
     Indication: ANTICOAGULANT THERAPY
     Dosage: 10-20MG APPROXIMATELY,EXACT DOSAGE UNKNOWN
     Route: 048
     Dates: start: 201301, end: 20140818

REACTIONS (1)
  - Cardiac tamponade [Fatal]
